FAERS Safety Report 14654654 (Version 4)
Quarter: 2018Q2

REPORT INFORMATION
  Report Type: Spontaneous
  Country: US (occurrence: US)
  Receive Date: 20180319
  Receipt Date: 20180406
  Transmission Date: 20180711
  Serious: Yes (Life-Threatening, Hospitalization, Other)
  Sender: FDA-Public Use
  Company Number: US-009507513-1803USA005928

PATIENT
  Age: 74 Year
  Sex: Male

DRUGS (4)
  1. EPACADOSTAT [Concomitant]
     Active Substance: EPACADOSTAT
     Indication: GASTROOESOPHAGEAL CANCER
  2. KEYTRUDA [Suspect]
     Active Substance: PEMBROLIZUMAB
     Indication: OESOPHAGEAL ADENOCARCINOMA STAGE IV
     Dosage: UNK, CYCLICAL
  3. EPACADOSTAT [Concomitant]
     Active Substance: EPACADOSTAT
     Indication: OESOPHAGEAL ADENOCARCINOMA STAGE IV
     Dosage: UNK
  4. KEYTRUDA [Suspect]
     Active Substance: PEMBROLIZUMAB
     Indication: GASTROOESOPHAGEAL CANCER

REACTIONS (5)
  - Conduction disorder [Recovered/Resolved]
  - Immune-mediated adverse reaction [Recovered/Resolved]
  - Myocarditis [Recovered/Resolved]
  - Product use issue [Unknown]
  - Off label use [Unknown]
